FAERS Safety Report 25987779 (Version 2)
Quarter: 2025Q4

REPORT INFORMATION
  Report Type: Report from Study
  Country: US (occurrence: US)
  Receive Date: 20251103
  Receipt Date: 20251112
  Transmission Date: 20260117
  Serious: Yes (Death)
  Sender: INSMED
  Company Number: US-INSMED, INC.-2025-05864-US

PATIENT
  Age: 65 Year
  Sex: Male

DRUGS (1)
  1. ARIKAYCE [Suspect]
     Active Substance: AMIKACIN
     Indication: Mycobacterial infection
     Dosage: 590 MILLIGRAM, QD
     Route: 055
     Dates: start: 20251015

REACTIONS (1)
  - Death [Fatal]

NARRATIVE: CASE EVENT DATE: 20251025
